FAERS Safety Report 8890140 (Version 1)
Quarter: 2012Q4

REPORT INFORMATION
  Report Type: 
  Country: CA (occurrence: CA)
  Receive Date: 20121106
  Receipt Date: 20121106
  Transmission Date: 20130627
  Serious: Yes (Death, Hospitalization)
  Sender: FDA-Public Use
  Company Number: PHMT2006CA02068

PATIENT
  Age: 61 Year
  Sex: Female

DRUGS (5)
  1. SANDOSTATIN LAR [Suspect]
     Indication: CARCINOID TUMOUR
     Dosage: 20 mg,  q 3 weeks
     Dates: start: 20060925
  2. SANDOSTATIN LAR [Suspect]
     Dosage: 20 mg, every 3 weeks
     Dates: start: 20061016
  3. DILAUDID [Concomitant]
  4. ESTROGENS [Concomitant]
  5. PROGESTERONE [Concomitant]

REACTIONS (9)
  - Death [Fatal]
  - Lung infection [Unknown]
  - Chest pain [Unknown]
  - Back pain [Unknown]
  - Musculoskeletal pain [Unknown]
  - Oedema peripheral [Unknown]
  - Hypoaesthesia [Unknown]
  - Pain [Unknown]
  - Hypotonia [Unknown]
